FAERS Safety Report 21450346 (Version 2)
Quarter: 2023Q1

REPORT INFORMATION
  Report Type: Spontaneous
  Country: US (occurrence: US)
  Receive Date: 20221013
  Receipt Date: 20230203
  Transmission Date: 20230417
  Serious: No
  Sender: FDA-Public Use
  Company Number: US-AMGEN-USASP2022174309

PATIENT
  Age: 63 Year
  Sex: Female
  Weight: 61.224 kg

DRUGS (7)
  1. REPATHA [Suspect]
     Active Substance: EVOLOCUMAB
     Indication: Blood cholesterol increased
     Dosage: 140 MILLIGRAM, Q2WK
     Route: 058
     Dates: start: 20221006
  2. REPATHA [Suspect]
     Active Substance: EVOLOCUMAB
     Indication: Chest pain
  3. NEURONTIN [Concomitant]
     Active Substance: GABAPENTIN
     Dosage: 600 MILLIGRAM, TID
  4. TYLENOL [Concomitant]
     Active Substance: ACETAMINOPHEN
     Dosage: 4 PRN, BID
  5. MOTRIN [Concomitant]
     Active Substance: IBUPROFEN
     Dosage: 800 MILLIGRAM, TID
  6. PEPCID [Concomitant]
     Active Substance: FAMOTIDINE
     Dosage: UNK
  7. VITAMIN D [Concomitant]
     Active Substance: VITAMIN D NOS
     Dosage: UNK

REACTIONS (4)
  - Malaise [Unknown]
  - Nasal congestion [Recovered/Resolved]
  - Off label use [Unknown]
  - Back pain [Unknown]

NARRATIVE: CASE EVENT DATE: 20221006
